FAERS Safety Report 5868727-2 (Version None)
Quarter: 2008Q3

REPORT INFORMATION
  Report Type: 
  Country: None (occurrence: None)
  Receive Date: 20080828
  Receipt Date: 20080819
  Transmission Date: 20090109
  Serious: Yes (Hospitalization)
  Sender: FDA-Public Use
  Company Number: 2008US000686

PATIENT
  Age: 49 Year
  Sex: Male

DRUGS (15)
  1. AMEVIVE [Suspect]
     Indication: PSORIASIS
     Dosage: 15 MG, WEEKLY, INTRAMUSCULAR
     Route: 030
     Dates: start: 20080109
  2. ASPIRIN [Concomitant]
  3. DILTIAZEM [Concomitant]
  4. HYDROCHLOROTHIAZIDE [Concomitant]
  5. ZOSTRIX (CAPSAICIN) [Concomitant]
  6. PROVENTIL [Concomitant]
  7. SPIRIVA [Concomitant]
  8. ZOCOR [Concomitant]
  9. ADVAIR DISKUS 100/50 [Concomitant]
  10. ATIVAN [Concomitant]
  11. CHANTIX [Concomitant]
  12. COMBIVENT (IPRATROPIUM BROMIDE) [Concomitant]
  13. ATROVENT [Concomitant]
  14. NYSTATIN [Concomitant]
  15. ALBUTEROL (SALBUTAMOL SULFATE) [Concomitant]

REACTIONS (12)
  - ASTHMA [None]
  - BLOOD ALBUMIN INCREASED [None]
  - BLOOD CHOLESTEROL INCREASED [None]
  - BLOOD GLUCOSE INCREASED [None]
  - BLOOD TRIGLYCERIDES INCREASED [None]
  - CD4 LYMPHOCYTES DECREASED [None]
  - CONDITION AGGRAVATED [None]
  - HIGH DENSITY LIPOPROTEIN DECREASED [None]
  - LOW DENSITY LIPOPROTEIN INCREASED [None]
  - LUNG DISORDER [None]
  - MYOCARDIAL ISCHAEMIA [None]
  - RED BLOOD CELL COUNT DECREASED [None]
